FAERS Safety Report 12254705 (Version 2)
Quarter: 2016Q2

REPORT INFORMATION
  Report Type: Spontaneous
  Country: DE (occurrence: DE)
  Receive Date: 20160411
  Receipt Date: 20160419
  Transmission Date: 20160815
  Serious: Yes (Other)
  Sender: FDA-Public Use
  Company Number: DE-PFIZER INC-2016195210

PATIENT
  Age: 74 Year
  Sex: Male

DRUGS (13)
  1. VITAMIN B12 [Concomitant]
     Active Substance: CYANOCOBALAMIN
     Dosage: 1 DF, TWICE MONTHLY- APPROX. 2 AMPULES PER MONTH
  2. ZINKOROT 25 [Concomitant]
     Active Substance: ZINC OROTATE
     Dosage: UNK
  3. BECLOMETASONE DIPROPIONATE [Suspect]
     Active Substance: BECLOMETHASONE DIPROPIONATE
     Dosage: 1 DF, 2X/DAY
     Route: 065
     Dates: start: 2015
  4. SODIUM SELENITE [Concomitant]
     Active Substance: SODIUM SELENITE
     Dosage: UNK
  5. BECLOMETASONE DIPROPIONATE [Suspect]
     Active Substance: BECLOMETHASONE DIPROPIONATE
     Dosage: 1 DF, 1X/DAY
     Route: 065
     Dates: start: 2011, end: 2015
  6. RAMIPRIL. [Suspect]
     Active Substance: RAMIPRIL
     Indication: HYPERTENSION
     Dosage: 2.5 MG, DAILY
     Route: 065
     Dates: start: 2014
  7. COLECALCIFEROL [Suspect]
     Active Substance: CHOLECALCIFEROL
     Dosage: 20000 2-3 TIMES PER MONTH
     Route: 065
  8. PROSTAGUTT FORTE [Concomitant]
     Active Substance: HERBALS
     Dosage: UNK
  9. MONTELUKAST [Suspect]
     Active Substance: MONTELUKAST SODIUM
     Dosage: 10 MG, 1X/DAY
     Route: 065
     Dates: start: 2012
  10. FORMOTEROL FUMARATE [Suspect]
     Active Substance: FORMOTEROL FUMARATE
     Dosage: 1 DF, DAILY
     Route: 065
     Dates: start: 2011, end: 2015
  11. RAMIPRIL. [Suspect]
     Active Substance: RAMIPRIL
     Dosage: 5 MG, 1X/DAY
     Dates: start: 201511
  12. AAS [Concomitant]
     Active Substance: ASPIRIN
     Dosage: 1 DF, 1X/DAY
  13. RED YEAST [Concomitant]
     Active Substance: YEAST
     Dosage: UNK

REACTIONS (22)
  - Sleep disorder [Unknown]
  - Abdominal distension [Unknown]
  - Weight bearing difficulty [Unknown]
  - Hypoaesthesia [Unknown]
  - Incontinence [Unknown]
  - Gastric disorder [Unknown]
  - Dyspnoea [Unknown]
  - Fatigue [Unknown]
  - Amnesia [Unknown]
  - Arthropathy [Unknown]
  - Paraesthesia [Unknown]
  - Chills [Unknown]
  - Thirst [Unknown]
  - Agitation [Unknown]
  - Confusional state [Unknown]
  - Premature ageing [Unknown]
  - Exercise tolerance decreased [Unknown]
  - Nervousness [Unknown]
  - Dyspnoea [Unknown]
  - Feeling cold [Recovered/Resolved]
  - Pollakiuria [Unknown]
  - Nasopharyngitis [Unknown]

NARRATIVE: CASE EVENT DATE: 2015
